FAERS Safety Report 4578036-X (Version None)
Quarter: 2005Q1

REPORT INFORMATION
  Report Type: 
  Country: None (occurrence: None)
  Receive Date: 20050203
  Receipt Date: 20050203
  Transmission Date: 20050727
  Serious: Yes (Hospitalization)
  Sender: FDA-Public Use
  Company Number: None

PATIENT
  Age: 53 Year
  Sex: Male
  Weight: 57.1532 kg

DRUGS (10)
  1. TIMENTIN [Suspect]
     Indication: LOBAR PNEUMONIA
     Dosage: 3.1GM  Q6H INTRAVENOUS
     Route: 042
     Dates: start: 20050114, end: 20050115
  2. ACETAMINOPHEN [Concomitant]
  3. AZITHROMYCIN [Concomitant]
  4. ROCEPHIN [Concomitant]
  5. GUAIFENESIN [Concomitant]
  6. HEPARIN [Concomitant]
  7. LACTULOSE [Concomitant]
  8. PREVACID [Concomitant]
  9. LEVYTHYROXINE [Concomitant]
  10. NOREPINEPHRINE [Concomitant]

REACTIONS (2)
  - NEUTROPHIL COUNT DECREASED [None]
  - WHITE BLOOD CELL COUNT DECREASED [None]
